FAERS Safety Report 18249679 (Version 1)
Quarter: 2020Q3

REPORT INFORMATION
  Report Type: Spontaneous
  Country: US (occurrence: US)
  Receive Date: 20200909
  Receipt Date: 20200909
  Transmission Date: 20201103
  Serious: Yes (Other)
  Sender: FDA-Public Use
  Company Number: US-FRESENIUS KABI-FK202009164

PATIENT
  Sex: Male

DRUGS (1)
  1. MORPHINE (MANUFACTURER UNKNOWN) [Suspect]
     Active Substance: MORPHINE
     Indication: PRODUCT USED FOR UNKNOWN INDICATION
     Dosage: UNKNOWN
     Route: 065

REACTIONS (6)
  - Neoplasm malignant [Unknown]
  - Gastric ulcer [Unknown]
  - Vomiting [Unknown]
  - Drug dependence [Unknown]
  - Decreased appetite [Unknown]
  - Adverse event [Unknown]
